FAERS Safety Report 18455251 (Version 1)
Quarter: 2020Q4

REPORT INFORMATION
  Report Type: Spontaneous
  Country: US (occurrence: US)
  Receive Date: 20201102
  Receipt Date: 20201102
  Transmission Date: 20210114
  Serious: Yes (Hospitalization, Other)
  Sender: FDA-Public Use
  Company Number: US-BAYER-2020-226212

PATIENT
  Age: 69 Year
  Sex: Female

DRUGS (2)
  1. NEXAVAR [Suspect]
     Active Substance: SORAFENIB
     Indication: DESMOID TUMOUR
     Dosage: 400 MG, QD
     Route: 048
     Dates: start: 201811
  2. NEXAVAR [Suspect]
     Active Substance: SORAFENIB
     Indication: FIBROMATOSIS

REACTIONS (13)
  - Dysstasia [None]
  - Acid base balance abnormal [None]
  - Nephritis bacterial [None]
  - Kidney infection [None]
  - Product use in unapproved indication [None]
  - Diarrhoea [None]
  - Off label use [None]
  - Confusional state [Recovered/Resolved]
  - Cystitis [Recovered/Resolved]
  - Asthenia [None]
  - Diarrhoea [None]
  - Blood creatinine increased [None]
  - Renal failure [None]

NARRATIVE: CASE EVENT DATE: 201811
